FAERS Safety Report 5731403-0 (Version None)
Quarter: 2008Q2

REPORT INFORMATION
  Report Type: 
  Country: None (occurrence: None)
  Receive Date: 20080506
  Receipt Date: 20080506
  Transmission Date: 20081010
  Serious: Yes (Hospitalization)
  Sender: FDA-Public Use
  Company Number: None

PATIENT
  Age: 52 Year
  Sex: Male

DRUGS (9)
  1. GLEEVEC [Suspect]
     Indication: GLIOBLASTOMA MULTIFORME
     Dosage: 500MG BID PO CYCLE #3
     Route: 048
     Dates: start: 20080423
  2. ZACTIMA [Suspect]
     Indication: GLIOBLASTOMA MULTIFORME
     Dosage: 200MG PO QD CYCLE # 3
     Route: 048
     Dates: start: 20080423
  3. HYDREA [Suspect]
     Indication: GLIOBLASTOMA MULTIFORME
     Dosage: 500MG PO BID; CYCLE #3
     Route: 048
     Dates: start: 20080423
  4. DECADRON [Concomitant]
  5. HYDROCHLOROTHIAZIDE [Concomitant]
  6. KEPPRA [Concomitant]
  7. LISINOPRIL [Concomitant]
  8. DILANTIN [Concomitant]
  9. PROTONIX [Concomitant]

REACTIONS (7)
  - ANTICONVULSANT DRUG LEVEL BELOW THERAPEUTIC [None]
  - ATAXIA [None]
  - CONFUSIONAL STATE [None]
  - FATIGUE [None]
  - HYPOKALAEMIA [None]
  - HYPONATRAEMIA [None]
  - PROTEIN URINE PRESENT [None]
